FAERS Safety Report 9617500 (Version 2)
Quarter: 2013Q4

REPORT INFORMATION
  Report Type: Spontaneous
  Country: US (occurrence: US)
  Receive Date: 20131011
  Receipt Date: 20131217
  Transmission Date: 20140711
  Serious: Yes (Hospitalization)
  Sender: FDA-Public Use
  Company Number: US-GLAXOSMITHKLINE-A1044965A

PATIENT
  Age: 65 Year
  Sex: Female

DRUGS (1)
  1. ARIXTRA [Suspect]
     Indication: THROMBOSIS
     Dosage: 7.5MG UNKNOWN
     Route: 042
     Dates: start: 20130915

REACTIONS (2)
  - Thrombosis [Unknown]
  - Condition aggravated [Unknown]
